FAERS Safety Report 8055483-5 (Version None)
Quarter: 2012Q1

REPORT INFORMATION
  Report Type: 
  Country: None (occurrence: None)
  Receive Date: 20120119
  Receipt Date: 20120113
  Transmission Date: 20120608
  Serious: Yes (Disabling, Other)
  Sender: FDA-Public Use
  Company Number: US-SANOFI-AVENTIS-2012SA002884

PATIENT
  Sex: Female

DRUGS (7)
  1. DEPAKOTE ER [Concomitant]
     Indication: AFFECT LABILITY
  2. ADDERALL 5 [Concomitant]
     Dosage: 30 MG TWO OF THEM EACH TIME THREE TIMES A DAY
  3. MIRTAZAPINE [Concomitant]
     Indication: DEPRESSION
  4. FOLIC ACID [Concomitant]
     Indication: DEPRESSION
  5. VENLAFAXINE [Concomitant]
     Indication: DEPRESSION
  6. AMBIEN CR [Suspect]
     Indication: INSOMNIA
     Route: 048
     Dates: end: 20111025
  7. XANAX [Suspect]
     Indication: ANXIETY
     Route: 065
     Dates: start: 20080101

REACTIONS (11)
  - FALL [None]
  - DRUG WITHDRAWAL SYNDROME [None]
  - DYSPNOEA [None]
  - VISION BLURRED [None]
  - ROAD TRAFFIC ACCIDENT [None]
  - TREMOR [None]
  - ANXIETY [None]
  - MUSCLE TWITCHING [None]
  - PALPITATIONS [None]
  - CARDIAC DISORDER [None]
  - FACIAL SPASM [None]
